FAERS Safety Report 24406833 (Version 1)
Quarter: 2024Q4

REPORT INFORMATION
  Report Type: Spontaneous
  Country: CN (occurrence: CN)
  Receive Date: 20241007
  Receipt Date: 20241007
  Transmission Date: 20250115
  Serious: Yes (Hospitalization, Other)
  Sender: BAXTER
  Company Number: None

PATIENT
  Age: 40 Year
  Sex: Female
  Weight: 58 kg

DRUGS (16)
  1. CYCLOPHOSPHAMIDE [Suspect]
     Active Substance: CYCLOPHOSPHAMIDE
     Indication: Lymphoma
     Dosage: 1.8 G, ONE TIME IN ONE DAY DILUTED WITH 0.9% SODIUM CHLORIDE INJECTION 100ML, AS A PART OF R-DA-EPOC
     Route: 041
     Dates: start: 20240828, end: 20240828
  2. CYCLOPHOSPHAMIDE [Suspect]
     Active Substance: CYCLOPHOSPHAMIDE
     Indication: Diffuse large B-cell lymphoma
  3. SODIUM CHLORIDE [Suspect]
     Active Substance: SODIUM CHLORIDE
     Indication: Medication dilution
     Dosage: (0.9%) 100 ML ONE TIME IN ONE DAY USED TO DILUTE CYCLOPHOSPHAMIDE 1.8 G
     Route: 041
     Dates: start: 20240828, end: 20240828
  4. SODIUM CHLORIDE [Suspect]
     Active Substance: SODIUM CHLORIDE
     Dosage: (0.9%) 700 ML, ONE TIME IN ONE DAY USED TO DILUTE RITUXIMAB 700 MG
     Route: 041
     Dates: start: 20240823, end: 20240823
  5. SODIUM CHLORIDE [Suspect]
     Active Substance: SODIUM CHLORIDE
     Dosage: (0.9%) 290 ML, ONE TIME IN ONE DAY USED TO DILUTE VINCRISTINE SULFATE 0.5MG AND ETOPOSIDE 0.13G
     Route: 050
     Dates: start: 20240824, end: 20240827
  6. ANHYDROUS DEXTROSE [Suspect]
     Active Substance: ANHYDROUS DEXTROSE
     Indication: Medication dilution
     Dosage: (5%) 250 ML, ONE TIME IN ONE DAY USED TO DILUTE DOXORUBICIN HYDROCHLORIDE LIPOSOMAL 60 MG
     Route: 041
     Dates: start: 20240824, end: 20240824
  7. ETOPOSIDE [Suspect]
     Active Substance: ETOPOSIDE
     Indication: Lymphoma
     Dosage: 0.13 G, ONE TIME IN ONE DAY, DILUTED WITH 0.9% SODIUM CHLORIDE INJECTION 290 ML AND 0.5 MG VINCRISTI
     Route: 050
     Dates: start: 20240824, end: 20240827
  8. ETOPOSIDE [Suspect]
     Active Substance: ETOPOSIDE
     Indication: Diffuse large B-cell lymphoma
  9. DOXORUBICIN HYDROCHLORIDE [Suspect]
     Active Substance: DOXORUBICIN HYDROCHLORIDE
     Indication: Lymphoma
     Dosage: 60 MG, ONE TIME IN ONE DAY DILUTED WITH 5% GLUCOSE INJECTION 250 ML, AS A PART OF R-DA-EPOCH REGIMEN
     Route: 041
     Dates: start: 20240824, end: 20240824
  10. DOXORUBICIN HYDROCHLORIDE [Suspect]
     Active Substance: DOXORUBICIN HYDROCHLORIDE
     Indication: Diffuse large B-cell lymphoma
  11. VINCRISTINE SULFATE [Suspect]
     Active Substance: VINCRISTINE SULFATE
     Indication: Lymphoma
     Dosage: 0.5 MG, ONE TIME IN ONE DAY, DILUTED WITH 0.9% SODIUM CHLORIDE INJECTION 290 ML, AS A PART OF R-DA-E
     Route: 050
     Dates: start: 20240824, end: 20240827
  12. VINCRISTINE SULFATE [Suspect]
     Active Substance: VINCRISTINE SULFATE
     Indication: Diffuse large B-cell lymphoma
  13. RITUXIMAB [Suspect]
     Active Substance: RITUXIMAB
     Indication: Lymphoma
     Dosage: 700 MG, ONE TIME IN ONE DAY DILUTED WITH 0.9% SODIUM CHLORIDE INJECTION 700 ML, AS A PART OF R-DA-EP
     Route: 041
     Dates: start: 20240823, end: 20240823
  14. RITUXIMAB [Suspect]
     Active Substance: RITUXIMAB
     Indication: Diffuse large B-cell lymphoma
  15. PREDNISONE [Suspect]
     Active Substance: PREDNISONE
     Indication: Diffuse large B-cell lymphoma
     Dosage: UNK, AS A PART OF  R-DA-EPOCH REGIMEN
     Route: 065
  16. PREDNISONE [Suspect]
     Active Substance: PREDNISONE
     Indication: Lymphoma

REACTIONS (6)
  - Myelosuppression [Recovering/Resolving]
  - Pyrexia [Recovering/Resolving]
  - Granulocytosis [Recovering/Resolving]
  - Thrombocytopenia [Recovering/Resolving]
  - Anaemia [Recovering/Resolving]
  - Mouth ulceration [Recovering/Resolving]

NARRATIVE: CASE EVENT DATE: 20240905
